FAERS Safety Report 5472524-X (Version None)
Quarter: 2007Q3

REPORT INFORMATION
  Report Type: 
  Country: None (occurrence: None)
  Receive Date: 20070926
  Receipt Date: 20070913
  Transmission Date: 20080115
  Serious: Yes (Other)
  Sender: FDA-Public Use
  Company Number: 2007JP004062

PATIENT
  Age: 74 Year
  Sex: Male
  Weight: 50 kg

DRUGS (6)
  1. PROGRAF [Suspect]
     Indication: RHEUMATOID ARTHRITIS
     Dosage: 0.5 MG UID/QD, ORAL, 1 MG, UID/QD, ORAL
     Route: 048
     Dates: start: 20070413, end: 20070426
  2. PROGRAF [Suspect]
     Indication: RHEUMATOID ARTHRITIS
     Dosage: 0.5 MG UID/QD, ORAL, 1 MG, UID/QD, ORAL
     Route: 048
     Dates: start: 20070427, end: 20070818
  3. METHOTREXATE [Suspect]
     Indication: RHEUMATOID ARTHRITIS
     Dosage: 4 MG, WEEKLY, ORAL, 6 MG, WEEKLY, ORAL, 8 MG, WEEKLY, ORAL
     Route: 048
     Dates: start: 20060913, end: 20061119
  4. METHOTREXATE [Suspect]
     Indication: RHEUMATOID ARTHRITIS
     Dosage: 4 MG, WEEKLY, ORAL, 6 MG, WEEKLY, ORAL, 8 MG, WEEKLY, ORAL
     Route: 048
     Dates: start: 20061120, end: 20070215
  5. METHOTREXATE [Suspect]
     Indication: RHEUMATOID ARTHRITIS
     Dosage: 4 MG, WEEKLY, ORAL, 6 MG, WEEKLY, ORAL, 8 MG, WEEKLY, ORAL
     Route: 048
     Dates: start: 20070216, end: 20070818
  6. FOLIC ACID [Concomitant]

REACTIONS (1)
  - INTERSTITIAL LUNG DISEASE [None]
